FAERS Safety Report 24052087 (Version 3)
Quarter: 2024Q3

REPORT INFORMATION
  Report Type: Spontaneous
  Country: ES (occurrence: ES)
  Receive Date: 20240704
  Receipt Date: 20240903
  Transmission Date: 20241017
  Serious: Yes (Hospitalization, Other)
  Sender: BAUSCH AND LOMB
  Company Number: ES-BAXTER-2024BAX018311

PATIENT
  Age: 67 Year
  Sex: Female
  Weight: 69.1 kg

DRUGS (57)
  1. LORAZEPAM [Suspect]
     Active Substance: LORAZEPAM
     Indication: Product used for unknown indication
     Route: 065
     Dates: start: 202301
  2. LORAZEPAM [Suspect]
     Active Substance: LORAZEPAM
     Route: 065
     Dates: start: 202301
  3. LORAZEPAM [Suspect]
     Active Substance: LORAZEPAM
     Route: 065
     Dates: start: 202301
  4. LORAZEPAM [Suspect]
     Active Substance: LORAZEPAM
     Route: 065
     Dates: start: 202301
  5. ACYCLOVIR [Suspect]
     Active Substance: ACYCLOVIR
     Indication: Product used for unknown indication
     Route: 065
     Dates: start: 2023
  6. IFOSFAMIDE [Suspect]
     Active Substance: IFOSFAMIDE
     Indication: Diffuse large B-cell lymphoma stage I
     Dosage: CYCLE 1, AS A PART OF R-ICE REGIMEN
     Route: 042
     Dates: start: 20240206, end: 20240322
  7. IFOSFAMIDE [Suspect]
     Active Substance: IFOSFAMIDE
     Dosage: CYCLE 2, AS A PART OF R-ICE REGIMEN
     Route: 042
     Dates: start: 20240321, end: 20240322
  8. IFOSFAMIDE [Suspect]
     Active Substance: IFOSFAMIDE
     Dosage: CYCLE 3, AS A PART OF R-ICE REGIMEN
     Route: 042
     Dates: start: 20240424, end: 20240425
  9. IFOSFAMIDE [Suspect]
     Active Substance: IFOSFAMIDE
     Dosage: AS A PART OF R-ICE REGIMEN
     Route: 065
     Dates: start: 20240425
  10. CARBOPLATIN [Suspect]
     Active Substance: CARBOPLATIN
     Indication: Diffuse large B-cell lymphoma stage I
     Dosage: 2 AUC, CYCLE 3, AS A PART OF R-ICE REGIMEN
     Route: 042
     Dates: start: 20240424
  11. CARBOPLATIN [Suspect]
     Active Substance: CARBOPLATIN
     Dosage: 5 AUC, CYCLE 1, AS A PART OF R-ICE REGIMEN
     Route: 042
     Dates: start: 20240206, end: 20240206
  12. CARBOPLATIN [Suspect]
     Active Substance: CARBOPLATIN
     Dosage: 2 AUC, CYCLE 1, AS A PART OF R-ICE REGIMEN
     Route: 042
     Dates: start: 20240321, end: 20240321
  13. CALCIUM [Suspect]
     Active Substance: CALCIUM
     Indication: Product used for unknown indication
     Route: 065
     Dates: start: 20240226
  14. TRAMADOL [Suspect]
     Active Substance: TRAMADOL\TRAMADOL HYDROCHLORIDE
     Indication: Product used for unknown indication
     Route: 065
     Dates: start: 20240226
  15. DOXORUBICIN [Suspect]
     Active Substance: DOXORUBICIN
     Indication: Product used for unknown indication
     Route: 065
     Dates: start: 20230301, end: 20230616
  16. RITUXIMAB [Suspect]
     Active Substance: RITUXIMAB
     Indication: Diffuse large B-cell lymphoma stage I
     Dosage: CYCLE 1, AS A PART OF R-ICE REGIMEN
     Route: 042
     Dates: start: 20240205, end: 20240205
  17. RITUXIMAB [Suspect]
     Active Substance: RITUXIMAB
     Dosage: CYCLE 2, AS A PART OF R-ICE REGIMEN
     Route: 042
     Dates: start: 20240320, end: 20240320
  18. RITUXIMAB [Suspect]
     Active Substance: RITUXIMAB
     Dosage: CYCLE 3, ONGOING, AS A PART OF R-ICE REGIMEN
     Route: 042
     Dates: start: 20240423
  19. DEXCHLORPHENIRAMINE [Suspect]
     Active Substance: DEXCHLORPHENIRAMINE
     Indication: Premedication
     Dosage: 2 MG
     Route: 065
     Dates: start: 20240408, end: 20240408
  20. DEXCHLORPHENIRAMINE [Suspect]
     Active Substance: DEXCHLORPHENIRAMINE
     Route: 042
     Dates: start: 20240425, end: 20240425
  21. DEXCHLORPHENIRAMINE [Suspect]
     Active Substance: DEXCHLORPHENIRAMINE
     Route: 065
     Dates: start: 20240418
  22. ERGOCALCIFEROL [Suspect]
     Active Substance: ERGOCALCIFEROL
     Indication: Product used for unknown indication
     Dosage: UNK, ONGOING
     Route: 065
     Dates: start: 20240226, end: 20240505
  23. ACETAMINOPHEN [Suspect]
     Active Substance: ACETAMINOPHEN
     Indication: Premedication
     Route: 065
     Dates: start: 20240226
  24. ACETAMINOPHEN [Suspect]
     Active Substance: ACETAMINOPHEN
     Dosage: 1000 MG
     Route: 042
     Dates: start: 20240425, end: 20240425
  25. ACETAMINOPHEN [Suspect]
     Active Substance: ACETAMINOPHEN
     Dosage: 1000 MG
     Route: 048
     Dates: start: 20240408, end: 20240408
  26. ACETAMINOPHEN [Suspect]
     Active Substance: ACETAMINOPHEN
     Dosage: UNK, ONGOING
     Route: 065
     Dates: start: 20240506
  27. OMEPRAZOLE MAGNESIUM [Suspect]
     Active Substance: OMEPRAZOLE MAGNESIUM
     Indication: Product used for unknown indication
     Route: 065
     Dates: start: 2023
  28. SULFAMETHOXAZOLE [Suspect]
     Active Substance: SULFAMETHOXAZOLE
     Indication: Product used for unknown indication
     Route: 065
     Dates: start: 20240226
  29. ETOPOSIDE [Suspect]
     Active Substance: ETOPOSIDE
     Indication: Diffuse large B-cell lymphoma stage I
     Dosage: CYCLE 1, AS A PART OF R-ICE REGIMEN
     Route: 042
     Dates: start: 20240205, end: 20240207
  30. ETOPOSIDE [Suspect]
     Active Substance: ETOPOSIDE
     Dosage: AS A PART OF R-ICE REGIMEN
     Route: 065
     Dates: start: 20240425
  31. ETOPOSIDE [Suspect]
     Active Substance: ETOPOSIDE
     Dosage: CYCLE 3, AS A PART OF R-ICE REGIMEN
     Route: 042
     Dates: start: 20240423, end: 20240425
  32. ETOPOSIDE [Suspect]
     Active Substance: ETOPOSIDE
     Dosage: CYCLE 2, AS A PART OF R-ICE REGIMEN
     Route: 042
     Dates: start: 20240320, end: 20240322
  33. ETOPOSIDE [Suspect]
     Active Substance: ETOPOSIDE
     Dosage: 50 MG/M2, AS A PART OF R-ICE REGIMEN
     Route: 042
     Dates: start: 20240424
  34. APIXABAN [Suspect]
     Active Substance: APIXABAN
     Indication: Product used for unknown indication
     Route: 065
     Dates: start: 20240226, end: 20240505
  35. TRIMETHOPRIM [Suspect]
     Active Substance: TRIMETHOPRIM
     Indication: Product used for unknown indication
     Route: 065
     Dates: start: 20240226
  36. PREGABALIN [Suspect]
     Active Substance: PREGABALIN
     Indication: Product used for unknown indication
     Route: 065
     Dates: start: 20240226
  37. PREGABALIN [Suspect]
     Active Substance: PREGABALIN
     Route: 065
     Dates: start: 20240226
  38. PREGABALIN [Suspect]
     Active Substance: PREGABALIN
     Route: 065
     Dates: start: 20240226
  39. PREGABALIN [Suspect]
     Active Substance: PREGABALIN
     Dosage: UNK, ONGOING
     Route: 065
     Dates: start: 20240226, end: 20240509
  40. EPCORITAMAB [Suspect]
     Active Substance: EPCORITAMAB
     Indication: Diffuse large B-cell lymphoma stage I
     Dosage: 48 MG/M2,
     Route: 058
     Dates: start: 20240425
  41. EPCORITAMAB [Suspect]
     Active Substance: EPCORITAMAB
     Dosage: CYCLE 1, PRIMING DOSE
     Route: 058
     Dates: start: 20240207, end: 20240207
  42. EPCORITAMAB [Suspect]
     Active Substance: EPCORITAMAB
     Dosage: CYCLE 3 DAY 15 (C3D15)
     Route: 065
     Dates: start: 20240503
  43. EPCORITAMAB [Suspect]
     Active Substance: EPCORITAMAB
     Dosage: RE-PRIMING INTERMEDIATE DOSE
     Route: 058
     Dates: start: 20240307, end: 20240307
  44. EPCORITAMAB [Suspect]
     Active Substance: EPCORITAMAB
     Dosage: C2D1
     Route: 058
     Dates: start: 20240322, end: 20240322
  45. EPCORITAMAB [Suspect]
     Active Substance: EPCORITAMAB
     Dosage: RE-PRIMING DOSE 1
     Route: 058
     Dates: start: 20240229, end: 20240229
  46. EPCORITAMAB [Suspect]
     Active Substance: EPCORITAMAB
     Dosage: FIRST FULL DOSE, RE-PRIMING 1
     Route: 058
     Dates: start: 20240314, end: 20240314
  47. EPCORITAMAB [Suspect]
     Active Substance: EPCORITAMAB
     Dosage: C2D15, FULL DOSE, LATEST DOSE ADMINISTERED PRIOR TO THE EVENT ONSET
     Route: 058
     Dates: start: 20240418
  48. EPCORITAMAB [Suspect]
     Active Substance: EPCORITAMAB
     Dosage: C2D8
     Route: 058
     Dates: start: 20240410, end: 20240410
  49. EPCORITAMAB [Suspect]
     Active Substance: EPCORITAMAB
     Dosage: ,
     Route: 065
     Dates: start: 20240520
  50. CYCLOPHOSPHAMIDE [Suspect]
     Active Substance: CYCLOPHOSPHAMIDE
     Indication: Product used for unknown indication
     Route: 065
     Dates: start: 20230301, end: 20230616
  51. METOCLOPRAMIDE HYDROCHLORIDE [Concomitant]
     Active Substance: METOCLOPRAMIDE HYDROCHLORIDE
     Indication: Product used for unknown indication
     Dates: start: 20240506, end: 20240509
  52. ERGOCALCIFEROL [Concomitant]
     Active Substance: ERGOCALCIFEROL
     Indication: Product used for unknown indication
     Dates: start: 2011
  53. MAGNESIUM SULFATE [Concomitant]
     Active Substance: MAGNESIUM SULFATE\MAGNESIUM SULFATE HEPTAHYDRATE
     Indication: Product used for unknown indication
     Dates: start: 20240506, end: 20240506
  54. PIPERACILLIN [Concomitant]
     Active Substance: PIPERACILLIN
     Indication: Product used for unknown indication
     Dates: start: 20240506, end: 20240509
  55. METAMIZOLE [Concomitant]
     Active Substance: METAMIZOLE
     Indication: Product used for unknown indication
     Dates: start: 20240506, end: 20240506
  56. ONDANSETRON [Concomitant]
     Active Substance: ONDANSETRON
     Indication: Product used for unknown indication
     Dates: start: 20240506, end: 20240509
  57. TAZOBACTAM [Concomitant]
     Active Substance: TAZOBACTAM
     Indication: Product used for unknown indication
     Dates: start: 20240506, end: 20240509

REACTIONS (1)
  - Febrile neutropenia [Recovered/Resolved]

NARRATIVE: CASE EVENT DATE: 20240506
